FAERS Safety Report 9210908 (Version 2)
Quarter: 2013Q4

REPORT INFORMATION
  Report Type: Spontaneous
  Country: GB (occurrence: GB)
  Receive Date: 20130404
  Receipt Date: 20131007
  Transmission Date: 20140711
  Serious: Yes (Hospitalization)
  Sender: FDA-Public Use
  Company Number: PHHY2013GB030599

PATIENT
  Age: 8 Decade
  Sex: Female

DRUGS (12)
  1. DOXAZOSIN MESYLATE [Suspect]
     Dosage: 8 MG, DAILY
  2. DOXAZOSIN MESYLATE [Suspect]
     Dosage: 1 MG, UNK
     Dates: start: 200710
  3. TELMISARTAN [Suspect]
     Dosage: 80 MG, DAILY
  4. TELMISARTAN [Suspect]
     Dosage: 2 MG, UNK
     Dates: start: 200710
  5. AMLODIPINE [Suspect]
     Dosage: 5 MG, DAILY
  6. FUROSEMIDE [Suspect]
     Dosage: 80 MG, DAILY
  7. ACETYLSALICYLIC ACID [Suspect]
     Dosage: 75 MG, DAILY
  8. BISOPROLOL [Suspect]
     Dosage: 5 MG, DAILY
  9. CITALOPRAM [Suspect]
     Indication: DEPRESSION
     Dosage: 20 MG, DAILY
     Dates: start: 201207
  10. ATENOLOL [Suspect]
     Indication: HYPERTENSION
     Dosage: 25 MG, UNK
  11. ATENOLOL [Suspect]
     Dosage: 50 MG, UNK
     Dates: start: 201209
  12. ANTIBIOTICS [Concomitant]

REACTIONS (7)
  - Blood cholesterol increased [Unknown]
  - Low density lipoprotein increased [Unknown]
  - Pulmonary congestion [Unknown]
  - Fluid overload [Unknown]
  - Weight loss poor [Unknown]
  - Dyspnoea [Unknown]
  - Oedema [Unknown]
